FAERS Safety Report 9848279 (Version 1)
Quarter: 2014Q1

REPORT INFORMATION
  Report Type: Spontaneous
  Country: US (occurrence: US)
  Receive Date: 20140128
  Receipt Date: 20140128
  Transmission Date: 20141002
  Serious: No
  Sender: FDA-Public Use
  Company Number: US-009507513-1401USA011158

PATIENT
  Age: 68 Year
  Sex: Female

DRUGS (2)
  1. DULERA [Suspect]
     Indication: ASTHMA
     Dosage: 1 PUFF BY MOUTH, TWICE DAILY
     Route: 055
     Dates: start: 2013
  2. VENTOLIN (ALBUTEROL SULFATE) [Concomitant]
     Dosage: UNK

REACTIONS (3)
  - Bronchial disorder [Recovered/Resolved]
  - Drug dose omission [Unknown]
  - Product quality issue [Unknown]
